FAERS Safety Report 23543563 (Version 2)
Quarter: 2024Q1

REPORT INFORMATION
  Report Type: Spontaneous
  Country: US (occurrence: US)
  Receive Date: 20240220
  Receipt Date: 20240227
  Transmission Date: 20240410
  Serious: Yes (Death, Other)
  Sender: FDA-Public Use
  Company Number: US-MACLEODS PHARMACEUTICALS US LTD-MAC2024045909

PATIENT

DRUGS (11)
  1. DOLUTEGRAVIR [Interacting]
     Active Substance: DOLUTEGRAVIR
     Indication: HIV infection
     Dosage: 1 DOSAGE FORM, BID (DAY 36 TO DAY 38)
  2. DOLUTEGRAVIR [Interacting]
     Active Substance: DOLUTEGRAVIR
     Indication: Psychotherapy
  3. EMTRICITABINE\TENOFOVIR [Suspect]
     Active Substance: EMTRICITABINE\TENOFOVIR
     Indication: Psychotherapy
     Dosage: 1 DOSAGE FORM, QD (DAY 36 TO DAY 38)
  4. EMTRICITABINE\TENOFOVIR [Suspect]
     Active Substance: EMTRICITABINE\TENOFOVIR
     Indication: HIV infection
  5. POSACONAZOLE [Concomitant]
     Active Substance: POSACONAZOLE
     Indication: Mycotic endophthalmitis
     Dosage: UNK (DAY 31 TO DAY 48)
     Route: 065
  6. POSACONAZOLE [Concomitant]
     Active Substance: POSACONAZOLE
     Indication: Histoplasmosis disseminated
  7. LINEZOLID [Concomitant]
     Active Substance: LINEZOLID
     Indication: Disseminated tuberculosis
     Dosage: UNK (DAY 5 TO DAY 48)
     Route: 051
  8. MOXIFLOXACIN [Concomitant]
     Active Substance: MOXIFLOXACIN
     Indication: Disseminated tuberculosis
     Dosage: UNK (DAY 5 TO DAY 48)
     Route: 051
  9. RIFAMPIN [Concomitant]
     Active Substance: RIFAMPIN
     Indication: Disseminated tuberculosis
     Dosage: UNK (DAY 5 TO DAY 48)
     Route: 042
  10. AMIKACIN [Concomitant]
     Active Substance: AMIKACIN
     Indication: Disseminated tuberculosis
     Dosage: UNK (DAY 5 TO DAY 48)
     Route: 051
  11. ERYTHROMYCIN [Concomitant]
     Active Substance: ERYTHROMYCIN
     Indication: Gastrointestinal motility disorder
     Dosage: UNK (DAY 22 TO DAY 48)
     Route: 042

REACTIONS (2)
  - Multiple organ dysfunction syndrome [Fatal]
  - Vomiting [Unknown]
